FAERS Safety Report 5189775-4 (Version None)
Quarter: 2006Q4

REPORT INFORMATION
  Report Type: 
  Country: None (occurrence: None)
  Receive Date: 20061215
  Receipt Date: 20061208
  Transmission Date: 20070319
  Serious: Yes (Hospitalization, Other)
  Sender: FDA-Public Use
  Company Number: 233623

PATIENT
  Age: 49 Year
  Sex: Female

DRUGS (1)
  1. XOLAIR [Suspect]
     Indication: ASTHMA
     Dosage: 150 MG, 2/WEEK
     Dates: start: 20060731, end: 20061101

REACTIONS (3)
  - ASTHENIA [None]
  - ASTHMA [None]
  - CONDITION AGGRAVATED [None]
